FAERS Safety Report 7939906-5 (Version None)
Quarter: 2011Q4

REPORT INFORMATION
  Report Type: 
  Country: None (occurrence: None)
  Receive Date: 20111125
  Receipt Date: 20110913
  Transmission Date: 20120403
  Serious: No
  Sender: FDA-Public Use
  Company Number: US-BAYER-2011-090545

PATIENT
  Age: 40 Year
  Sex: Female
  Weight: 98 kg

DRUGS (2)
  1. ALEVE (CAPLET) [Suspect]
     Indication: HEADACHE
     Dosage: UNK
     Route: 048
     Dates: end: 20110913
  2. ORAL CONTRACEPTIVE NOS [Concomitant]

REACTIONS (1)
  - NO ADVERSE EVENT [None]
